FAERS Safety Report 11750569 (Version 1)
Quarter: 2015Q4

REPORT INFORMATION
  Report Type: Spontaneous
  Country: TR (occurrence: TR)
  Receive Date: 20151118
  Receipt Date: 20151118
  Transmission Date: 20160304
  Serious: Yes (Other)
  Sender: FDA-Public Use
  Company Number: TR-B.I. PHARMACEUTICALS,INC./RIDGEFIELD-2015-BI-62364BI

PATIENT
  Age: 44 Year
  Sex: Male

DRUGS (9)
  1. FEXOFENADINE [Concomitant]
     Active Substance: FEXOFENADINE\FEXOFENADINE HYDROCHLORIDE
     Indication: STILL^S DISEASE ADULT ONSET
     Route: 065
  2. HYDROXYZINE [Concomitant]
     Active Substance: HYDROXYZINE\HYDROXYZINE HYDROCHLORIDE
     Indication: STILL^S DISEASE ADULT ONSET
     Route: 065
  3. MOBIC [Suspect]
     Active Substance: MELOXICAM
     Indication: STILL^S DISEASE ADULT ONSET
     Route: 065
  4. AMOXICILLIN/KLAVULONATE [Concomitant]
     Indication: STILL^S DISEASE ADULT ONSET
     Route: 065
  5. CLINDAMYCIN [Concomitant]
     Active Substance: CLINDAMYCIN\CLINDAMYCIN PHOSPHATE
     Indication: STILL^S DISEASE ADULT ONSET
     Route: 065
  6. EBASTINE [Concomitant]
     Active Substance: EBASTINE
     Indication: STILL^S DISEASE ADULT ONSET
     Route: 065
  7. LEVOFLOXACIN. [Concomitant]
     Active Substance: LEVOFLOXACIN
     Indication: STILL^S DISEASE ADULT ONSET
     Route: 065
  8. FLURBIPROFEN. [Concomitant]
     Active Substance: FLURBIPROFEN
     Indication: STILL^S DISEASE ADULT ONSET
     Route: 065
  9. PHENIRAMIN [Concomitant]
     Indication: STILL^S DISEASE ADULT ONSET
     Route: 065

REACTIONS (3)
  - Drug ineffective [Unknown]
  - Hepatitis acute [Recovered/Resolved]
  - Histiocytosis haematophagic [Recovered/Resolved]
